FAERS Safety Report 23472038 (Version 1)
Quarter: 2024Q1

REPORT INFORMATION
  Report Type: Spontaneous
  Country: FR (occurrence: FR)
  Receive Date: 20240202
  Receipt Date: 20240202
  Transmission Date: 20240410
  Serious: Yes (Hospitalization)
  Sender: FDA-Public Use
  Company Number: None

PATIENT

DRUGS (1)
  1. ATROPINE [Suspect]
     Active Substance: ATROPINE\ATROPINE SULFATE
     Indication: Product used for unknown indication
     Dosage: 1 DROP
     Route: 031
     Dates: start: 20231209, end: 20231209

REACTIONS (6)
  - Agitation [Recovered/Resolved]
  - Oropharyngeal pain [Recovered/Resolved]
  - Mydriasis [Recovered/Resolved]
  - Headache [Recovered/Resolved]
  - Ventricular tachycardia [Recovered/Resolved]
  - Erythema [Recovered/Resolved]

NARRATIVE: CASE EVENT DATE: 20231209
